FAERS Safety Report 8590106-8 (Version None)
Quarter: 2012Q3

REPORT INFORMATION
  Report Type: 
  Country: None (occurrence: None)
  Receive Date: 20120813
  Receipt Date: 19910715
  Transmission Date: 20120928
  Serious: Yes (Other)
  Sender: FDA-Public Use
  Company Number: US-ROCHE-1099754

PATIENT
  Age: 64 Year
  Sex: Male

DRUGS (4)
  1. LIDOCAINE [Concomitant]
     Route: 040
  2. MORPHINE SULPHATE DRIP [Concomitant]
     Route: 042
  3. LIDOCAINE [Concomitant]
     Route: 041
  4. ACTIVASE [Suspect]
     Indication: MYOCARDIAL INFARCTION

REACTIONS (3)
  - VENTRICULAR EXTRASYSTOLES [None]
  - HYPOTENSION [None]
  - CHEST PAIN [None]
